FAERS Safety Report 24357970 (Version 2)
Quarter: 2025Q2

REPORT INFORMATION
  Report Type: Report from Study
  Country: US (occurrence: US)
  Receive Date: 20240924
  Receipt Date: 20250607
  Transmission Date: 20250716
  Serious: No
  Sender: STEMLINE THERAPEUTICS
  Company Number: US-Stemline Therapeutics, Inc.-2024ST004505

PATIENT

DRUGS (2)
  1. ORSERDU [Suspect]
     Active Substance: ELACESTRANT
     Indication: Breast cancer female
     Dosage: 86 MG, BID
     Route: 048
     Dates: start: 20231003
  2. XGEVA [Suspect]
     Active Substance: DENOSUMAB
     Indication: Product used for unknown indication

REACTIONS (8)
  - Laboratory test abnormal [Unknown]
  - Pain [Unknown]
  - Product dose omission issue [Unknown]
  - Gastrooesophageal reflux disease [Unknown]
  - Asthenia [Unknown]
  - Vomiting [Unknown]
  - Headache [Recovering/Resolving]
  - Underdose [Unknown]

NARRATIVE: CASE EVENT DATE: 20240101
